FAERS Safety Report 17588116 (Version 2)
Quarter: 2020Q2

REPORT INFORMATION
  Report Type: Spontaneous
  Country: SE (occurrence: SE)
  Receive Date: 20200327
  Receipt Date: 20200611
  Transmission Date: 20200713
  Serious: Yes (Other)
  Sender: FDA-Public Use
  Company Number: SE-ELI_LILLY_AND_COMPANY-SE202003008961

PATIENT
  Age: 63 Year
  Sex: Female

DRUGS (2)
  1. PACLITAXEL. [Suspect]
     Active Substance: PACLITAXEL
     Indication: PANCREATIC CARCINOMA METASTATIC
     Dosage: INTRAVENOUS INFUSIONS, DAYS 1, 8, AND 15 IN A FOUR WEEK CYCLE
     Route: 042
  2. GEMCITABINE HYDROCHLORIDE. [Suspect]
     Active Substance: GEMCITABINE HYDROCHLORIDE
     Indication: DUCTAL ADENOCARCINOMA OF PANCREAS
     Dosage: INTRAVENOUS INFUSIONS, DAYS 1, 8, AND 15 IN A FOUR WEEK CYCLE
     Route: 042

REACTIONS (2)
  - Escherichia infection [Recovered/Resolved]
  - Polyneuropathy [Recovering/Resolving]
